FAERS Safety Report 18841309 (Version 26)
Quarter: 2022Q2

REPORT INFORMATION
  Report Type: Spontaneous
  Country: GB (occurrence: GB)
  Receive Date: 20210204
  Receipt Date: 20220405
  Transmission Date: 20220720
  Serious: Yes (Death, Hospitalization, Other)
  Sender: FDA-Public Use
  Company Number: GB-CONSILIENT HEALTH-CONSIL20200500701

PATIENT
  Age: 61 Year
  Sex: Male

DRUGS (66)
  1. HALDOL [Suspect]
     Active Substance: HALOPERIDOL
     Indication: Schizophrenia
     Dosage: 5 MILLIGRAM, BID
     Route: 048
  2. HALDOL [Suspect]
     Active Substance: HALOPERIDOL
     Dosage: 5 MILLIGRAM, BID
     Route: 065
  3. HALDOL [Suspect]
     Active Substance: HALOPERIDOL
     Route: 048
  4. HALDOL [Suspect]
     Active Substance: HALOPERIDOL
     Dosage: 20 MG, BID
     Route: 048
  5. RISPERDAL [Suspect]
     Active Substance: RISPERIDONE
     Indication: Schizophrenia
     Dosage: 3 MILLIGRAM, BID
     Route: 048
  6. RISPERDAL [Suspect]
     Active Substance: RISPERIDONE
     Dosage: 2 MILLIGRAM, BID
     Route: 065
  7. RISPERDAL [Suspect]
     Active Substance: RISPERIDONE
     Dosage: 1 GRAM, QD
     Route: 065
  8. RISPERDAL [Suspect]
     Active Substance: RISPERIDONE
     Dosage: 3 MILLIGRAM, BID
     Route: 065
  9. RISPERDAL [Suspect]
     Active Substance: RISPERIDONE
     Dosage: 1 MILLIGRAM, QD
     Route: 065
  10. RISPERDAL [Suspect]
     Active Substance: RISPERIDONE
     Dosage: 2 MILLIGRAM, BID
     Route: 065
  11. ZUCLOPENTHIXOL ACETATE [Suspect]
     Active Substance: ZUCLOPENTHIXOL ACETATE
     Indication: Product used for unknown indication
     Dosage: 400 MILLIGRAM, BIWEEKLY
     Route: 065
     Dates: start: 20030204, end: 20040217
  12. ZUCLOPENTHIXOL ACETATE [Suspect]
     Active Substance: ZUCLOPENTHIXOL ACETATE
     Dosage: 300 MILLIGRAM I.M WEEKLY
     Route: 030
     Dates: start: 20091009
  13. ZUCLOPENTHIXOL ACETATE [Suspect]
     Active Substance: ZUCLOPENTHIXOL ACETATE
     Dosage: 400 MILLIGRAM, BIWEEKLY
     Route: 065
     Dates: start: 20040601, end: 20041018
  14. ZUCLOPENTHIXOL ACETATE [Suspect]
     Active Substance: ZUCLOPENTHIXOL ACETATE
     Dosage: 400 MILLIGRAM, WEEKLY
     Route: 065
     Dates: start: 20040217, end: 20040601
  15. ZUCLOPENTHIXOL ACETATE [Suspect]
     Active Substance: ZUCLOPENTHIXOL ACETATE
     Dosage: UNK
     Route: 065
  16. ZUCLOPENTHIXOL ACETATE [Suspect]
     Active Substance: ZUCLOPENTHIXOL ACETATE
     Dosage: 400 MILLIGRAM, BIWEEKLY
     Route: 065
     Dates: start: 20041018, end: 20041018
  17. ZUCLOPENTHIXOL ACETATE [Suspect]
     Active Substance: ZUCLOPENTHIXOL ACETATE
     Dosage: 300 MILLIGRAM, QD
     Route: 030
     Dates: start: 20091009
  18. ZUCLOPENTHIXOL ACETATE [Suspect]
     Active Substance: ZUCLOPENTHIXOL ACETATE
     Dosage: 300 MG, WEEKLY (1/W)
     Route: 030
     Dates: start: 20091018
  19. LITHIUM [Suspect]
     Active Substance: LITHIUM
     Indication: Product used for unknown indication
     Dosage: 1 GRAM
     Route: 065
  20. LITHIUM [Suspect]
     Active Substance: LITHIUM
     Dosage: 1 GRAM
     Route: 065
  21. CLOZARIL [Suspect]
     Active Substance: CLOZAPINE
     Indication: Schizophrenia
     Dosage: UNK UNK, AM?OFF LABEL USE
     Route: 065
  22. CLOZARIL [Suspect]
     Active Substance: CLOZAPINE
     Indication: Schizophrenia
     Dosage: 300 MILLIGRAM, PM?OFF LABEL USE
     Route: 065
  23. CLOZARIL [Suspect]
     Active Substance: CLOZAPINE
     Dosage: 275 MILLIGRAM, PM?OFF LABEL USE
     Route: 065
  24. CLOZARIL [Suspect]
     Active Substance: CLOZAPINE
     Dosage: 200 MILLIGRAM, BID?OFF LABEL USE
     Route: 048
  25. CLOZARIL [Suspect]
     Active Substance: CLOZAPINE
     Dosage: 100 MILLIGRAM, AM?OFF LABEL USE
     Route: 065
  26. CLOZARIL [Suspect]
     Active Substance: CLOZAPINE
     Dosage: UNK?OFF LABEL USE
     Route: 048
     Dates: start: 20100823
  27. CLOZARIL [Suspect]
     Active Substance: CLOZAPINE
     Dosage: 200 MILLIGRAM, BID?OFF LABEL USE
     Route: 048
     Dates: start: 20191209, end: 20191223
  28. CLOZARIL [Suspect]
     Active Substance: CLOZAPINE
     Dosage: 50 MILLIGRAM MIDDAY?OFF LABEL USE
     Route: 065
  29. CLOZARIL [Suspect]
     Active Substance: CLOZAPINE
     Dosage: OFF LABEL USE
     Route: 048
  30. CLOZARIL [Suspect]
     Active Substance: CLOZAPINE
     Dosage: OFF LABEL USE
     Route: 048
  31. CLOZARIL [Suspect]
     Active Substance: CLOZAPINE
     Dosage: 200 MILLIGRAM, BID
     Route: 065
  32. CLOZARIL [Suspect]
     Active Substance: CLOZAPINE
     Route: 048
     Dates: start: 20191223, end: 20191223
  33. CLOZARIL [Suspect]
     Active Substance: CLOZAPINE
     Route: 048
     Dates: start: 20191209, end: 20191223
  34. CLOZARIL [Suspect]
     Active Substance: CLOZAPINE
     Route: 048
  35. CLOZARIL [Suspect]
     Active Substance: CLOZAPINE
     Route: 048
     Dates: start: 20191209, end: 20191223
  36. CLOZARIL [Suspect]
     Active Substance: CLOZAPINE
     Route: 048
     Dates: start: 2011
  37. CLOZARIL [Suspect]
     Active Substance: CLOZAPINE
     Dosage: 400 MILLIGRAM, QD (400 MG, DAILY)
     Route: 065
     Dates: start: 20191209, end: 20191223
  38. CLOZARIL [Suspect]
     Active Substance: CLOZAPINE
     Dosage: OFF LABEL USE
     Route: 048
  39. CLOZARIL [Suspect]
     Active Substance: CLOZAPINE
     Route: 048
     Dates: start: 2011
  40. OLANZAPINE [Suspect]
     Active Substance: OLANZAPINE
     Indication: Schizophrenia
     Dosage: 2.5 UNK
     Route: 065
     Dates: start: 20080823
  41. OLANZAPINE [Suspect]
     Active Substance: OLANZAPINE
     Dosage: 15 UNK
     Route: 065
     Dates: start: 20040217
  42. OLANZAPINE [Suspect]
     Active Substance: OLANZAPINE
     Dosage: 15 UNK
     Route: 065
     Dates: start: 20060704
  43. OLANZAPINE [Suspect]
     Active Substance: OLANZAPINE
     Dosage: 10 UNK
     Route: 065
  44. ARIPIPRAZOLE [Suspect]
     Active Substance: ARIPIPRAZOLE
     Indication: Schizophrenia
     Dosage: 5 MILLIGRAM
     Route: 065
  45. LORAZEPAM [Suspect]
     Active Substance: LORAZEPAM
     Indication: Schizophrenia
     Dosage: 1 MILLIGRAM
     Route: 048
  46. CHLORPROMAZINE [Suspect]
     Active Substance: CHLORPROMAZINE
     Indication: Schizophrenia
     Dosage: 75 MILLIGRAM
     Route: 065
  47. ZUCLOPENTHIXOL [Suspect]
     Active Substance: ZUCLOPENTHIXOL
     Indication: Product used for unknown indication
     Dosage: BI WEEKLY
     Route: 065
     Dates: start: 20040217, end: 20040601
  48. PERTUZUMAB [Suspect]
     Active Substance: PERTUZUMAB
     Indication: Breast cancer metastatic
     Dosage: 420 MG, Q3W (CUMULATIVE DOSE: 820.83 MG)
     Route: 042
     Dates: start: 20151021
  49. PERTUZUMAB [Suspect]
     Active Substance: PERTUZUMAB
     Dosage: 840 MG, Q3W (CUMULATIVE DOSE: 2481.6667 MG)
     Route: 042
     Dates: start: 20150930
  50. DOCETAXEL [Suspect]
     Active Substance: DOCETAXEL
     Indication: Breast cancer metastatic
     Dosage: 110 MG, Q3W (CUMULATIVE DOSE: 324.98)
     Route: 042
     Dates: start: 20150930, end: 20151021
  51. TRASTUZUMAB [Suspect]
     Active Substance: TRASTUZUMAB
     Indication: Breast cancer metastatic
     Dosage: 609 MG, Q3W (1799.20 MG)
     Route: 042
     Dates: start: 20150930
  52. PACLITAXEL [Suspect]
     Active Substance: PACLITAXEL
     Indication: Breast cancer metastatic
     Dosage: 120 MG, QW (CUMULATIVE DOSE: 377.142)
     Route: 042
     Dates: start: 20151223, end: 20151223
  53. PACLITAXEL [Suspect]
     Active Substance: PACLITAXEL
     Dosage: 150 MG, QW (CUMULATIVE DOSE: 377.142)
     Route: 042
     Dates: start: 20151111, end: 20151222
  54. MIRTAZAPINE [Concomitant]
     Active Substance: MIRTAZAPINE
     Indication: Product used for unknown indication
     Dosage: 15 MG, QD (245)
     Route: 048
     Dates: start: 201510
  55. PREGABALIN [Concomitant]
     Active Substance: PREGABALIN
     Indication: Product used for unknown indication
     Dosage: 75 MG, EVERY 0.5 DAY
     Route: 048
     Dates: start: 201509
  56. MORPHINE SULFATE [Concomitant]
     Active Substance: MORPHINE SULFATE
     Indication: Product used for unknown indication
     Dosage: 10 MG (AS NECESSARY)
     Route: 065
     Dates: start: 201509
  57. CALCIUM\CHOLECALCIFEROL [Concomitant]
     Active Substance: CALCIUM\CHOLECALCIFEROL
     Indication: Product used for unknown indication
     Dosage: 2 DF, QD  (DOSE FORM: 245)
     Route: 048
  58. MORPHINE [Concomitant]
     Active Substance: MORPHINE
     Indication: Product used for unknown indication
     Dosage: 30 MG (EVERY 0.5 DAY)
     Route: 048
     Dates: start: 201509
  59. AMOXICILLIN\CLAVULANATE POTASSIUM [Concomitant]
     Active Substance: AMOXICILLIN\CLAVULANATE POTASSIUM
     Indication: Febrile neutropenia
     Dosage: 625 MG (EVERY 0.33 DAYS, CUMULATIVE DOSE: 16875)
     Route: 048
     Dates: start: 20151122, end: 20151125
  60. PIPERACILLIN SODIUM\TAZOBACTAM SODIUM [Concomitant]
     Active Substance: PIPERACILLIN SODIUM\TAZOBACTAM SODIUM
     Indication: Febrile neutropenia
     Dosage: UNK
     Route: 065
     Dates: start: 20151121, end: 201511
  61. DENOSUMAB [Concomitant]
     Active Substance: DENOSUMAB
     Indication: Metastases to bone
     Dosage: 120 MG, EVERY 9 WEEKS, (CUMULATIVE DOSE: 118.174)
     Route: 058
     Dates: start: 20150930
  62. LEVOFLOXACIN [Concomitant]
     Active Substance: LEVOFLOXACIN
     Indication: Febrile neutropenia
     Dosage: 500 MG, QD (CUMULATIVE DOSE: 3000)
     Route: 048
     Dates: start: 20151125
  63. GENTAMICIN [Concomitant]
     Active Substance: GENTAMICIN
     Indication: Febrile neutropenia
     Dosage: UNK
     Route: 042
     Dates: start: 20151121, end: 201511
  64. ACETAMINOPHEN [Concomitant]
     Active Substance: ACETAMINOPHEN
     Indication: Pain
     Dosage: 500 MG (DOSE FORM 245)
     Route: 048
     Dates: start: 20150127
  65. RANITIDINE [Concomitant]
     Active Substance: RANITIDINE
     Indication: Gastrooesophageal reflux disease
     Dosage: 50 MG, QW (CUMULATIVE DOSE: 142.857)
     Route: 058
     Dates: start: 20151111
  66. CHLORPHENIRAMINE MALEATE [Concomitant]
     Active Substance: CHLORPHENIRAMINE MALEATE
     Indication: Product used for unknown indication
     Dosage: 10 MG, QW (CUMULATIVE DOSE 28.57)
     Route: 058
     Dates: start: 20151111

REACTIONS (24)
  - Disease progression [Fatal]
  - Affective disorder [Recovered/Resolved]
  - Hallucination, auditory [Unknown]
  - Neutropenia [Recovered/Resolved]
  - Neuropathy peripheral [Recovered/Resolved]
  - Psychotic disorder [Recovered/Resolved]
  - Platelet count decreased [Recovered/Resolved]
  - Cellulitis [Recovered/Resolved]
  - Neutrophil count increased [Unknown]
  - Incorrect dose administered [Unknown]
  - Alopecia [Recovered/Resolved]
  - Mucosal inflammation [Recovered/Resolved]
  - Diarrhoea [Recovered/Resolved]
  - Dyspepsia [Recovered/Resolved]
  - Nasal discomfort [Recovered/Resolved]
  - Nausea [Recovered/Resolved]
  - Extrapyramidal disorder [Unknown]
  - Lymphocyte count decreased [Unknown]
  - COVID-19 [Unknown]
  - Fatigue [Not Recovered/Not Resolved]
  - Leukopenia [Recovered/Resolved with Sequelae]
  - Delusion of grandeur [Unknown]
  - Off label use [Fatal]
  - Schizophrenia [Not Recovered/Not Resolved]

NARRATIVE: CASE EVENT DATE: 20151101
